FAERS Safety Report 11445429 (Version 1)
Quarter: 2015Q3

REPORT INFORMATION
  Report Type: Report from Study
  Country: VE (occurrence: VE)
  Receive Date: 20150902
  Receipt Date: 20150902
  Transmission Date: 20151125
  Serious: Yes (Hospitalization, Other)
  Sender: FDA-Public Use
  Company Number: VE-ABBVIE-15K-178-1429705-00

PATIENT
  Age: 19 Year
  Sex: Female
  Weight: 48 kg

DRUGS (1)
  1. HUMIRA [Suspect]
     Active Substance: ADALIMUMAB
     Indication: JUVENILE IDIOPATHIC ARTHRITIS
     Route: 058
     Dates: start: 201410, end: 20150607

REACTIONS (2)
  - Haemoglobin decreased [Recovering/Resolving]
  - Kidney infection [Recovered/Resolved]

NARRATIVE: CASE EVENT DATE: 201506
